FAERS Safety Report 9795399 (Version 1)
Quarter: 2014Q1

REPORT INFORMATION
  Report Type: Spontaneous
  Country: US (occurrence: US)
  Receive Date: 20140103
  Receipt Date: 20140103
  Transmission Date: 20141002
  Serious: No
  Sender: FDA-Public Use
  Company Number: US-BAYER-2014-000468

PATIENT
  Sex: Female

DRUGS (5)
  1. BETASERON [Suspect]
     Dosage: 0.25 MG, QOD
     Route: 058
  2. ADVIL [Concomitant]
  3. GABAPENTIN [Concomitant]
     Dosage: 100 MG, UNK
  4. PERCOCET [Concomitant]
     Dosage: 5-325MG
  5. TYLENOL [PARACETAMOL] [Concomitant]
     Dosage: 325 MG, UNK

REACTIONS (1)
  - Influenza like illness [Unknown]
